FAERS Safety Report 5478032-4 (Version None)
Quarter: 2007Q4

REPORT INFORMATION
  Report Type: 
  Country: None (occurrence: None)
  Receive Date: 20071005
  Receipt Date: 20060906
  Transmission Date: 20080405
  Serious: No
  Sender: FDA-Public Use
  Company Number: US-BRISTOL-MYERS SQUIBB COMPANY-13447289

PATIENT
  Age: 68 Year
  Sex: Female
  Weight: 49 kg

DRUGS (8)
  1. AVAPRO [Suspect]
     Indication: DIABETES MELLITUS
     Dosage: THERAPY DURATION: 1 DOSE ONLY.
     Route: 048
     Dates: start: 20060719, end: 20060719
  2. NOVOLOG [Concomitant]
  3. CALCIUM [Concomitant]
  4. LISINOPRIL [Concomitant]
  5. CRESTOR [Concomitant]
  6. FOSAMAX [Concomitant]
  7. BIOTIN [Concomitant]
  8. BILBERRY [Concomitant]

REACTIONS (1)
  - DYSGEUSIA [None]
